FAERS Safety Report 8607470-3 (Version None)
Quarter: 2012Q3

REPORT INFORMATION
  Report Type: 
  Country: None (occurrence: None)
  Receive Date: 20120809
  Receipt Date: 20120809
  Transmission Date: 20120928
  Serious: Yes (Life-Threatening, Hospitalization)
  Sender: FDA-Public Use
  Company Number: None

PATIENT
  Age: 63 Year
  Sex: Male
  Weight: 75.2 kg

DRUGS (2)
  1. METHADONE HCL [Suspect]
     Dosage: 20MG BID PO
     Route: 048
     Dates: start: 20000327, end: 20110909
  2. FUROSEMIDE [Suspect]
     Dosage: 40 MG BID PO
     Route: 048
     Dates: start: 20100305, end: 20110909

REACTIONS (2)
  - ACUTE MYOCARDIAL INFARCTION [None]
  - HYPOTENSION [None]
